FAERS Safety Report 24216270 (Version 1)
Quarter: 2024Q3

REPORT INFORMATION
  Report Type: Spontaneous
  Country: GB (occurrence: GB)
  Receive Date: 20240816
  Receipt Date: 20240816
  Transmission Date: 20241016
  Serious: Yes (Other)
  Sender: TEVA
  Company Number: GB-MHRA-TPP7994397C1123492YC1722860720659

PATIENT
  Age: 67 Year
  Sex: Female
  Weight: 88 kg

DRUGS (19)
  1. DOXYCYCLINE [Suspect]
     Active Substance: DOXYCYCLINE\DOXYCYCLINE HYCLATE
     Dosage: TAKE TWO CAPSULES STRAIGHT AWAY THEN ONE CAPSUL...,
     Route: 065
     Dates: start: 20240726, end: 20240731
  2. LINAGLIPTIN [Concomitant]
     Active Substance: LINAGLIPTIN
     Indication: Ill-defined disorder
     Dates: start: 20240702
  3. LIDOCAINE [Concomitant]
     Active Substance: LIDOCAINE
     Indication: Ill-defined disorder
     Dosage: APPLY TO AFFECTED AREA,
     Route: 061
     Dates: start: 20240726, end: 20240727
  4. NIACINAMIDE\PYRIDOXINE HYDROCHLORIDE\RIBOFLAVIN\THIAMINE HYDROCHLORIDE [Concomitant]
     Active Substance: NIACINAMIDE\PYRIDOXINE HYDROCHLORIDE\RIBOFLAVIN\THIAMINE HYDROCHLORIDE
     Indication: Ill-defined disorder
     Dates: start: 20180706
  5. ASPIRIN [Concomitant]
     Active Substance: ASPIRIN
     Indication: Ill-defined disorder
     Dates: start: 20240702
  6. CARBOCYSTEINE [Concomitant]
     Active Substance: CARBOCYSTEINE
     Indication: Ill-defined disorder
     Dosage: ONLY CONTI...
     Dates: start: 20240726
  7. ALBUTEROL [Concomitant]
     Active Substance: ALBUTEROL
     Indication: Ill-defined disorder
     Dosage: (NO MORE THAN 2 TIMES/DAY)
     Route: 055
     Dates: start: 20240708
  8. BISOPROLOL [Concomitant]
     Active Substance: BISOPROLOL\BISOPROLOL FUMARATE
     Indication: Ill-defined disorder
     Dosage: IN THE MORNING ONLY,
     Dates: start: 20220607
  9. ISOPROPYL MYRISTATE\MINERAL OIL [Concomitant]
     Active Substance: ISOPROPYL MYRISTATE\MINERAL OIL
     Indication: Ill-defined disorder
     Dosage: TO BE USED WHEN REQUIRED
     Dates: start: 20210616
  10. FLUTICASONE [Concomitant]
     Active Substance: FLUTICASONE
     Indication: Ill-defined disorder
     Dosage: PUFFS,
     Route: 055
     Dates: start: 20240702, end: 20240703
  11. MORPHINE SULFATE [Concomitant]
     Active Substance: MORPHINE SULFATE
     Indication: Ill-defined disorder
     Dosage: 1 TSP UPTO QDS
     Dates: start: 20180102
  12. GAVISCON [Concomitant]
     Active Substance: ALUMINUM HYDROXIDE\MAGNESIUM CARBONATE
     Indication: Ill-defined disorder
     Dosage: 10-20ML TO BE TAKEN AFTER MEALS AND AT BEDTIME
     Dates: start: 20220905
  13. CHOLECALCIFEROL [Concomitant]
     Active Substance: CHOLECALCIFEROL
     Indication: Ill-defined disorder
     Dates: start: 20231120
  14. ALBUTEROL [Concomitant]
     Active Substance: ALBUTEROL
     Indication: Ill-defined disorder
     Dosage: USE AS DIRECTED
     Dates: start: 20240702
  15. SERETIDE [Concomitant]
     Active Substance: FLUTICASONE PROPIONATE\SALMETEROL XINAFOATE
     Indication: Ill-defined disorder
     Dates: start: 20240708
  16. EZETIMIBE [Concomitant]
     Active Substance: EZETIMIBE
     Indication: Ill-defined disorder
     Dates: start: 20240702
  17. SENNA [Concomitant]
     Active Substance: SENNA LEAF\SENNOSIDES\SENNOSIDES A AND B
     Indication: Ill-defined disorder
     Dosage: AT NIGHT WITH ORAMORPH,
     Dates: start: 20230605, end: 20240703
  18. LOSARTAN [Concomitant]
     Active Substance: LOSARTAN\LOSARTAN POTASSIUM
     Indication: Ill-defined disorder
     Dates: start: 20240702
  19. SENNOSIDES [Concomitant]
     Active Substance: SENNOSIDES
     Indication: Ill-defined disorder
     Dosage: TWO 5ML SPOONFULS TO BE TAKEN AT NIGHT
     Dates: start: 20221103

REACTIONS (2)
  - Hypersensitivity [Recovering/Resolving]
  - Vomiting [Recovering/Resolving]
